FAERS Safety Report 20767427 (Version 2)
Quarter: 2022Q3

REPORT INFORMATION
  Report Type: Spontaneous
  Country: US (occurrence: US)
  Receive Date: 20220429
  Receipt Date: 20220808
  Transmission Date: 20221026
  Serious: Yes (Other)
  Sender: FDA-Public Use
  Company Number: US-CELLTRION INC.-2022US004936

PATIENT

DRUGS (5)
  1. INFLECTRA [Suspect]
     Active Substance: INFLIXIMAB-DYYB
     Indication: Crohn^s disease
     Dosage: 980 MG EVERY 4 WEEKS (FIRST INFUSION)
     Dates: start: 20220311
  2. INFLECTRA [Suspect]
     Active Substance: INFLIXIMAB-DYYB
     Dosage: 980 MG EVERY 4 WEEKS (SECOND INFUSION)
     Dates: start: 20220413
  3. BENADRYL [Concomitant]
     Active Substance: DIPHENHYDRAMINE HYDROCHLORIDE
     Indication: Premedication
  4. SOLU-MEDROL [Concomitant]
     Active Substance: METHYLPREDNISOLONE SODIUM SUCCINATE
     Indication: Premedication
  5. PEPCID [Concomitant]
     Active Substance: FAMOTIDINE
     Indication: Premedication

REACTIONS (4)
  - Chest pain [Unknown]
  - Dyspnoea [Unknown]
  - Overdose [Unknown]
  - Off label use [Unknown]
